FAERS Safety Report 19680166 (Version 2)
Quarter: 2021Q3

REPORT INFORMATION
  Report Type: Spontaneous
  Country: IN (occurrence: IN)
  Receive Date: 20210810
  Receipt Date: 20210816
  Transmission Date: 20211014
  Serious: Yes (Hospitalization, Other)
  Sender: FDA-Public Use
  Company Number: IN-VISTAPHARM, INC.-VER202108-001767

PATIENT
  Age: 65 Year
  Sex: Female

DRUGS (3)
  1. CEPHALEXIN. [Suspect]
     Active Substance: CEPHALEXIN
     Indication: SKIN INFECTION
     Dosage: 500 MG
     Route: 048
  2. PHENYTOIN. [Suspect]
     Active Substance: PHENYTOIN
     Indication: POST PROCEDURAL COMPLICATION
  3. PHENYTOIN. [Suspect]
     Active Substance: PHENYTOIN
     Indication: HYDROCEPHALUS
     Dosage: 100 MG
     Route: 048

REACTIONS (2)
  - Overdose [Unknown]
  - SJS-TEN overlap [Recovered/Resolved]
